FAERS Safety Report 8780539 (Version 1)
Quarter: 2012Q4

REPORT INFORMATION
  Report Type: 
  Country: US (occurrence: US)
  Receive Date: 20120913
  Receipt Date: 20120913
  Transmission Date: 20130627
  Serious: No
  Sender: FDA-Public Use
  Company Number: US-PFIZER INC-2012225669

PATIENT
  Sex: Female

DRUGS (3)
  1. LYRICA [Suspect]
     Indication: FIBROMYALGIA
     Dosage: 100 mg, daily
     Dates: start: 200709
  2. LYRICA [Suspect]
     Dosage: 75 mg, daily at night
  3. LYRICA [Suspect]
     Dosage: 3 capsules of 25mg, UNK

REACTIONS (5)
  - Depression [Unknown]
  - Dyspnoea [Unknown]
  - Oedema peripheral [Unknown]
  - Middle insomnia [Unknown]
  - Pain in extremity [Unknown]
